FAERS Safety Report 6268529-1 (Version None)
Quarter: 2009Q3

REPORT INFORMATION
  Report Type: 
  Country: None (occurrence: None)
  Receive Date: 20090715
  Receipt Date: 20090703
  Transmission Date: 20100115
  Serious: Yes (Other)
  Sender: FDA-Public Use
  Company Number: SE-PFIZER INC-2009193562

PATIENT
  Age: 82 Year

DRUGS (1)
  1. SALAZOPYRIN [Suspect]
     Indication: MUSCULOSKELETAL PAIN
     Dosage: UNK
     Route: 065
     Dates: end: 20080722

REACTIONS (8)
  - APATHY [None]
  - CARDIAC FIBRILLATION [None]
  - CONFUSIONAL STATE [None]
  - ENCEPHALOPATHY [None]
  - HEADACHE [None]
  - HYPERTENSION [None]
  - LOSS OF CONSCIOUSNESS [None]
  - PYREXIA [None]
